FAERS Safety Report 7653370-5 (Version None)
Quarter: 2011Q3

REPORT INFORMATION
  Report Type: 
  Country: None (occurrence: None)
  Receive Date: 20110803
  Receipt Date: 20110802
  Transmission Date: 20111222
  Serious: Yes (Hospitalization)
  Sender: FDA-Public Use
  Company Number: US-SHIRE-PNT2-2011-00013

PATIENT
  Sex: Male
  Weight: 89.796 kg

DRUGS (8)
  1. MESALAMINE [Suspect]
     Indication: DIVERTICULITIS
     Dosage: 2.4 G, 1X/DAY:QD
     Dates: start: 20090715, end: 20110713
  2. PROTONIX [Concomitant]
     Indication: GASTRITIS
     Dosage: 40 MG, UNK
     Dates: start: 20090501
  3. HYDROCHLOROTHIAZIDE [Concomitant]
     Indication: HYPERTENSION
     Dosage: 50 MG, UNK
     Dates: start: 20090909
  4. NORVASC [Concomitant]
     Indication: HYPERTENSION
     Dosage: 5 MG, UNK
     Dates: start: 20100909
  5. LISINOPRIL [Concomitant]
     Indication: HYPERTENSION
     Dosage: 40 MG, UNK
     Dates: start: 20101102
  6. ATENOLOL [Concomitant]
     Indication: HYPERTENSION
     Dosage: 200 UNK, UNK
     Dates: start: 20101005
  7. BENEFIBER                          /00677201/ [Concomitant]
     Indication: SUPPLEMENTATION THERAPY
     Dosage: 2 TSP
     Dates: start: 20090501
  8. MULTIVITAMIN                       /00097801/ [Concomitant]
     Indication: SUPPLEMENTATION THERAPY
     Dosage: 1 TAB
     Dates: start: 20090527

REACTIONS (1)
  - GASTROINTESTINAL HAEMORRHAGE [None]
